FAERS Safety Report 9384200 (Version 2)
Quarter: 2013Q3

REPORT INFORMATION
  Report Type: Spontaneous
  Country: US (occurrence: US)
  Receive Date: 20130705
  Receipt Date: 20130725
  Transmission Date: 20140515
  Serious: Yes (Hospitalization)
  Sender: FDA-Public Use
  Company Number: US-ACCORD-018368

PATIENT
  Age: 77 Year
  Sex: Male

DRUGS (6)
  1. LEVETIRACETAM [Suspect]
     Indication: PROPHYLAXIS
     Route: 042
  2. FUROSEMIDE [Concomitant]
     Dosage: 20 MG PER NASOGASTRIC (NG) TUBE DAILY ON DAY 12
  3. HALOPERIDOL [Concomitant]
     Dosage: AS NEEDED
     Route: 042
  4. ISOSORBIDE DINITRATE [Concomitant]
     Dosage: 10 MG PER NG TUBE 3 TIMES DAILY
  5. LEVOTHYROXINE [Concomitant]
     Route: 042
  6. METOPROLOL TARTRATE [Concomitant]
     Dosage: 25 MG PER NG TUBE TWICE DAILY

REACTIONS (1)
  - Delirium [Recovered/Resolved]
